FAERS Safety Report 9748904 (Version 2)
Quarter: 2013Q4

REPORT INFORMATION
  Report Type: Spontaneous
  Country: US (occurrence: US)
  Receive Date: 20131212
  Receipt Date: 20131212
  Transmission Date: 20140711
  Serious: No
  Sender: FDA-Public Use
  Company Number: US-INCYTE CORPORATION-2013IN001323

PATIENT
  Age: 68 Year
  Sex: Female

DRUGS (12)
  1. JAKAFI [Suspect]
     Indication: SPLENOMEGALY
     Dosage: 20 MG, BID
     Route: 048
     Dates: start: 20130528, end: 2013
  2. JAKAFI [Suspect]
     Dosage: 10 MG, BID
     Route: 048
     Dates: start: 201306
  3. BACTRIM DS [Suspect]
     Indication: CYSTITIS
     Dosage: UNK
     Dates: start: 20130916
  4. CLARITIN-D 24HR [Concomitant]
  5. ATIVAN [Concomitant]
  6. ZOLOFT [Concomitant]
  7. LIPITOR [Concomitant]
  8. VICODIN [Concomitant]
  9. MAXZIDE [Concomitant]
  10. ASPIRIN [Concomitant]
  11. VITAMIN D [Concomitant]
  12. VITAMIN B12 [Concomitant]

REACTIONS (9)
  - Gait disturbance [Unknown]
  - Fall [Unknown]
  - Insomnia [Unknown]
  - Fatigue [Unknown]
  - Cystitis [Unknown]
  - Myalgia [Unknown]
  - Muscular weakness [Unknown]
  - Nervousness [Unknown]
  - Depression [Unknown]
